FAERS Safety Report 13237662 (Version 1)
Quarter: 2017Q1

REPORT INFORMATION
  Report Type: Spontaneous
  Country: US (occurrence: US)
  Receive Date: 20170215
  Receipt Date: 20170215
  Transmission Date: 20170428
  Serious: Yes (Hospitalization)
  Sender: FDA-Public Use
  Company Number: None

PATIENT
  Age: 18 Year
  Sex: Female
  Weight: 120.9 kg

DRUGS (6)
  1. ONCASPAR [Suspect]
     Active Substance: PEGASPARGASE
     Dates: end: 20170104
  2. CYTARABINE. [Suspect]
     Active Substance: CYTARABINE
     Dates: end: 20170112
  3. PREDNISONE. [Suspect]
     Active Substance: PREDNISONE
     Dates: end: 20170120
  4. METHOTREXATE. [Suspect]
     Active Substance: METHOTREXATE
     Dates: end: 20170109
  5. VINCRISTINE SULFATE. [Suspect]
     Active Substance: VINCRISTINE SULFATE
     Dates: end: 20170117
  6. DAUNORUBICIN [Suspect]
     Active Substance: DAUNORUBICIN
     Dates: end: 20170117

REACTIONS (4)
  - Bacterial infection [None]
  - Alanine aminotransferase increased [None]
  - Neutropenia [None]
  - Sepsis [None]

NARRATIVE: CASE EVENT DATE: 20170121
